FAERS Safety Report 5810981-7 (Version None)
Quarter: 2008Q3

REPORT INFORMATION
  Report Type: 
  Country: None (occurrence: None)
  Receive Date: 20080710
  Receipt Date: 20080630
  Transmission Date: 20090109
  Serious: Yes (Hospitalization, Other)
  Sender: FDA-Public Use
  Company Number: 50179

PATIENT
  Age: 38 Year
  Sex: Male

DRUGS (1)
  1. CISPLATIN [Suspect]
     Indication: METASTATIC GASTRIC CANCER
     Dosage: 60MG/M2

REACTIONS (3)
  - DYSPNOEA [None]
  - RENAL FAILURE ACUTE [None]
  - TUMOUR LYSIS SYNDROME [None]
